FAERS Safety Report 19980673 (Version 1)
Quarter: 2021Q4

REPORT INFORMATION
  Report Type: Spontaneous
  Country: US (occurrence: US)
  Receive Date: 20211022
  Receipt Date: 20211022
  Transmission Date: 20220303
  Serious: No
  Sender: FDA-Public Use
  Company Number: US-ALVOGEN-2021-ALVOGEN-116614

PATIENT
  Sex: Female

DRUGS (1)
  1. RIVASTIGMINE [Suspect]
     Active Substance: RIVASTIGMINE
     Indication: Amnesia
     Dates: start: 202012

REACTIONS (4)
  - Application site erythema [Unknown]
  - Application site burn [Unknown]
  - Application site pruritus [Unknown]
  - Application site hypersensitivity [Unknown]
